FAERS Safety Report 5779771-8 (Version None)
Quarter: 2008Q2

REPORT INFORMATION
  Report Type: 
  Country: None (occurrence: None)
  Receive Date: 20080618
  Receipt Date: 20080610
  Transmission Date: 20081010
  Serious: Yes (Other)
  Sender: FDA-Public Use
  Company Number: 2008AP001497

PATIENT
  Age: 39 Year
  Sex: Female

DRUGS (2)
  1. PAROXETINE HCL [Suspect]
     Indication: DEPRESSION
  2. METHYLENE BLUE (METHYLTHIONINIUM CHLORIDE) [Suspect]
     Indication: PREOPERATIVE CARE
     Dosage: 517 MG; IV
     Route: 042
     Dates: start: 20080514, end: 20080514

REACTIONS (2)
  - DRUG INTERACTION [None]
  - SEROTONIN SYNDROME [None]
